FAERS Safety Report 7455906-6 (Version None)
Quarter: 2011Q2

REPORT INFORMATION
  Report Type: 
  Country: None (occurrence: None)
  Receive Date: 20110503
  Receipt Date: 20110429
  Transmission Date: 20111010
  Serious: Yes (Life-Threatening)
  Sender: FDA-Public Use
  Company Number: B0716346A

PATIENT
  Sex: Female

DRUGS (3)
  1. VALIUM [Concomitant]
     Dosage: 25MG PER DAY
     Route: 048
     Dates: start: 20080101
  2. LAMICTAL [Suspect]
     Route: 048
     Dates: start: 20101015, end: 20110312
  3. TERALITHE [Concomitant]
     Dosage: 400MG TWICE PER DAY
     Route: 048
     Dates: start: 20100201, end: 20110321

REACTIONS (10)
  - THROMBOCYTOPENIA [None]
  - NEUTROPENIA [None]
  - OEDEMA [None]
  - DRUG ERUPTION [None]
  - ECZEMA [None]
  - DRUG RASH WITH EOSINOPHILIA AND SYSTEMIC SYMPTOMS [None]
  - ERYTHEMA [None]
  - FACE OEDEMA [None]
  - CYTOLYTIC HEPATITIS [None]
  - BLISTER [None]
